FAERS Safety Report 5131887-5 (Version None)
Quarter: 2006Q4

REPORT INFORMATION
  Report Type: 
  Country: None (occurrence: None)
  Receive Date: 20061016
  Receipt Date: 20061004
  Transmission Date: 20070319
  Serious: Yes (Other)
  Sender: FDA-Public Use
  Company Number: 2006088335

PATIENT
  Age: 77 Year
  Sex: Male
  Weight: 63.5036 kg

DRUGS (4)
  1. LIPITOR [Suspect]
     Indication: BLOOD CHOLESTEROL INCREASED
     Dosage: 10 MG (10 MG, 1 IN 1 D),
     Dates: start: 20040601
  2. ENALAPRIL MALEATE [Concomitant]
  3. MULTI-VITAMINS [Concomitant]
  4. ASPIRIN [Concomitant]

REACTIONS (3)
  - AMNESIA [None]
  - HEADACHE [None]
  - NERVOUSNESS [None]
